FAERS Safety Report 24904108 (Version 1)
Quarter: 2025Q1

REPORT INFORMATION
  Report Type: Spontaneous
  Country: US (occurrence: None)
  Receive Date: 20250129
  Receipt Date: 20250129
  Transmission Date: 20250409
  Serious: Yes (Other)
  Sender: FDA-CTU
  Company Number: None

PATIENT
  Sex: Female
  Weight: 7.38 kg

DRUGS (1)
  1. BUPROPION [Suspect]
     Active Substance: BUPROPION
     Dates: start: 20210323

REACTIONS (10)
  - Pyrexia [None]
  - Oxygen saturation decreased [None]
  - Neonatal respiratory distress [None]
  - Hypoglycaemia neonatal [None]
  - Foetal exposure during pregnancy [None]
  - Sepsis [None]
  - C-reactive protein increased [None]
  - Pulmonary oedema neonatal [None]
  - Transient tachypnoea of the newborn [None]
  - Meconium aspiration syndrome [None]

NARRATIVE: CASE EVENT DATE: 20211227
